FAERS Safety Report 8538812-5 (Version None)
Quarter: 2012Q3

REPORT INFORMATION
  Report Type: 
  Country: None (occurrence: None)
  Receive Date: 20120713
  Receipt Date: 20120629
  Transmission Date: 20120928
  Serious: Yes (Hospitalization, Other)
  Sender: FDA-Public Use
  Company Number: CIP11001748

PATIENT
  Age: 60 Year
  Sex: Female
  Weight: 113.6 kg

DRUGS (39)
  1. FOLIC ACID [Concomitant]
  2. NEXIUM [Concomitant]
  3. IRON PREPARATIONS [Concomitant]
  4. CYMBALTA [Concomitant]
  5. DYAZIDE [Concomitant]
  6. ENBREL [Concomitant]
  7. AVELOX [Concomitant]
  8. PROZAC [Concomitant]
  9. PRAVACHOL [Concomitant]
  10. ASPIRIN [Concomitant]
  11. WELLBUTRIN [Concomitant]
  12. ACTONEL [Suspect]
     Dosage: 150 MG ONCE MONTHLY, ORAL
     Route: 048
     Dates: start: 20081119, end: 20091201
  13. HYZAAR (HYDROCHLOROTHIAZIDE, LOSARTAN POTASSIUM) /01284801/ [Concomitant]
  14. CYANOCOBALAMIN [Concomitant]
  15. PREDNISONE TAB [Concomitant]
  16. POTASSIUM CHLORIDE [Concomitant]
  17. TYLENOL ARTHRITIS (PARACETAMOL) [Concomitant]
  18. FERROUS SULFATE TAB [Concomitant]
  19. IBUPROFEN [Concomitant]
  20. LEXAPRO [Concomitant]
  21. LYRICA [Concomitant]
  22. METHOTREXATE SODIUM [Concomitant]
  23. AMOXICILLIN [Concomitant]
  24. NYSTATIN [Concomitant]
  25. DOXYCYCLINE HYCLATE [Concomitant]
  26. VICOPROFEN [Concomitant]
  27. ACTONEL [Suspect]
     Indication: OSTEOPOROSIS
     Dosage: 35 MG ONCE WEEKLY, ORAL
     Route: 048
     Dates: start: 20031217, end: 20070801
  28. PREVACID [Concomitant]
  29. LIPITOR [Concomitant]
  30. TORSEMIDE [Concomitant]
  31. PRILOSEC [Concomitant]
  32. HYDROCODONE BITARTRATE [Concomitant]
  33. ERGOCALCIFEROL [Concomitant]
  34. MULTIVITAMIN /00097801/ (ASCORBIC ACID, CALCIUM PANTOTHENATE, ERGOCALC [Concomitant]
  35. VITAMIN C /00008001/ (ASCORBIC ACID) [Concomitant]
  36. FOSAMAX [Suspect]
     Dosage: 70 MG ONCE WEEKLY, ORAL
     Route: 048
     Dates: start: 20070809, end: 20081001
  37. HYDROCODONE W/PARACETAMOL (HYDROCODONE, PARACETAMOL) [Concomitant]
  38. CEFUROXIME AXETIL [Concomitant]
  39. CALCIUM CARBONATE [Concomitant]

REACTIONS (14)
  - OEDEMA PERIPHERAL [None]
  - FEMUR FRACTURE [None]
  - FRACTURE NONUNION [None]
  - ABSCESS SOFT TISSUE [None]
  - BONE GRAFT [None]
  - TIBIA FRACTURE [None]
  - STRESS FRACTURE [None]
  - DYSSTASIA [None]
  - PAIN IN EXTREMITY [None]
  - FALL [None]
  - COMMINUTED FRACTURE [None]
  - JOINT CREPITATION [None]
  - DEVICE BREAKAGE [None]
  - FIBULA FRACTURE [None]
